FAERS Safety Report 12905647 (Version 3)
Quarter: 2017Q2

REPORT INFORMATION
  Report Type: Report from Study
  Country: DE (occurrence: DE)
  Receive Date: 20161103
  Receipt Date: 20170524
  Transmission Date: 20170830
  Serious: Yes (Hospitalization)
  Sender: FDA-Public Use
  Company Number: DE-ROCHE-1849818

PATIENT
  Sex: Male
  Weight: 70 kg

DRUGS (2)
  1. ESBRIET [Suspect]
     Active Substance: PIRFENIDONE
     Indication: IDIOPATHIC PULMONARY FIBROSIS
     Route: 048
     Dates: start: 20130115, end: 20151221
  2. NINTEDANIB [Concomitant]
     Active Substance: NINTEDANIB

REACTIONS (7)
  - General physical health deterioration [Not Recovered/Not Resolved]
  - Oxygen saturation decreased [Unknown]
  - General physical health deterioration [Unknown]
  - Diabetes mellitus [Unknown]
  - Cough [Unknown]
  - Dyspnoea [Unknown]
  - General physical health deterioration [Recovering/Resolving]

NARRATIVE: CASE EVENT DATE: 201609
